FAERS Safety Report 5348436-9 (Version None)
Quarter: 2007Q2

REPORT INFORMATION
  Report Type: 
  Country: None (occurrence: None)
  Receive Date: 20070605
  Receipt Date: 20070524
  Transmission Date: 20071010
  Serious: Yes (Death, Other)
  Sender: FDA-Public Use
  Company Number: 2007US000627

PATIENT
  Age: 92 Year
  Sex: Female

DRUGS (17)
  1. AMBISOME [Suspect]
     Indication: MENINGITIS CRYPTOCOCCAL
     Dosage: 135 MG, UID/QD, INT CORP CAVER
     Route: 011
     Dates: start: 20061130, end: 20070112
  2. MEROPENEM TRIHYDRATE(MEROPENEM TRIHYDRATE) [Suspect]
     Indication: DRUG USE FOR UNKNOWN INDICATION
     Dosage: SEE IMAGE
     Route: 041
     Dates: start: 20061130, end: 20061203
  3. MEROPENEM TRIHYDRATE(MEROPENEM TRIHYDRATE) [Suspect]
     Indication: DRUG USE FOR UNKNOWN INDICATION
     Dosage: SEE IMAGE
     Route: 041
     Dates: start: 20061221, end: 20061225
  4. FIRSTCIN(CEFOZOPRAN HYDROCHLORIDE) [Suspect]
     Indication: DRUG USE FOR UNKNOWN INDICATION
  5. MUCOSTA (REBAMIPIDE) [Concomitant]
  6. LANSOPRAZOLE [Concomitant]
  7. LAC B (LACTOBACILLUS BIFIDUS, LYOPHILIZED) [Concomitant]
  8. MAGMITT (MAGNESIUM OXIDE) [Concomitant]
  9. CALONAL [Concomitant]
  10. GLYCEOL (FRUCTOSE, GLYCEROL) [Concomitant]
  11. LASIX [Concomitant]
  12. ORGARAN [Concomitant]
  13. NITRODERM [Concomitant]
  14. LEVOFLOXACIN [Concomitant]
  15. MACROGOL (MACROGOL) [Concomitant]
  16. ALBUMIN (HUMAN) [Concomitant]
  17. HERBAL PREPARATION [Concomitant]

REACTIONS (7)
  - BLOOD ALBUMIN DECREASED [None]
  - CARDIAC FAILURE [None]
  - MALNUTRITION [None]
  - MITRAL VALVE INCOMPETENCE [None]
  - RENAL IMPAIRMENT [None]
  - TRICUSPID VALVE INCOMPETENCE [None]
  - URINARY TRACT INFECTION [None]
